FAERS Safety Report 20483758 (Version 2)
Quarter: 2022Q1

REPORT INFORMATION
  Report Type: Spontaneous
  Country: US (occurrence: US)
  Receive Date: 20220217
  Receipt Date: 20220224
  Transmission Date: 20220423
  Serious: No
  Sender: FDA-Public Use
  Company Number: US-GW PHARMA-202202USGW00691

PATIENT
  Sex: Female
  Weight: 29.478 kg

DRUGS (2)
  1. EPIDIOLEX [Suspect]
     Active Substance: CANNABIDIOL
     Indication: Lennox-Gastaut syndrome
     Dosage: 5.09 MG/KG/DAY, 75 MILLIGRAM, BID
     Route: 048
     Dates: start: 20220126, end: 20220202
  2. EPIDIOLEX [Suspect]
     Active Substance: CANNABIDIOL
     Indication: Epilepsy
     Dosage: 10.18 MG/KG/DAY, 150 MILLIGRAM, BID
     Route: 048
     Dates: start: 20220203

REACTIONS (6)
  - Coordination abnormal [Unknown]
  - Condition aggravated [Unknown]
  - Hypotonia [Unknown]
  - Drooling [Unknown]
  - Condition aggravated [Unknown]
  - Fatigue [Unknown]

NARRATIVE: CASE EVENT DATE: 20220101
